FAERS Safety Report 7595788-5 (Version None)
Quarter: 2011Q3

REPORT INFORMATION
  Report Type: 
  Country: None (occurrence: None)
  Receive Date: 20110707
  Receipt Date: 20110630
  Transmission Date: 20111222
  Serious: Yes (Other)
  Sender: FDA-Public Use
  Company Number: JP-PFIZER INC-2011144617

PATIENT
  Age: 8 Year

DRUGS (2)
  1. ZITHROMAX [Suspect]
     Indication: OTITIS MEDIA
     Dosage: UNK
     Route: 048
     Dates: start: 20110619, end: 20110621
  2. AUGMENTIN '125' [Concomitant]
     Indication: OTITIS MEDIA
     Dosage: UNK
     Dates: start: 20110613, end: 20110615

REACTIONS (1)
  - HEPATITIS VIRAL [None]
